FAERS Safety Report 23874948 (Version 1)
Quarter: 2024Q2

REPORT INFORMATION
  Report Type: Spontaneous
  Country: US (occurrence: US)
  Receive Date: 20240520
  Receipt Date: 20240520
  Transmission Date: 20240716
  Serious: No
  Sender: FDA-Public Use
  Company Number: US-PFIZER INC-PV202400064702

PATIENT

DRUGS (3)
  1. METOPROLOL TARTRATE [Suspect]
     Active Substance: METOPROLOL TARTRATE
     Indication: Blood pressure abnormal
     Dosage: UNK
  2. SACUBITRIL\VALSARTAN [Suspect]
     Active Substance: SACUBITRIL\VALSARTAN
     Indication: Blood pressure abnormal
     Dosage: UNK
  3. SPIRONOLACTONE\TORSEMIDE [Suspect]
     Active Substance: SPIRONOLACTONE\TORSEMIDE
     Indication: Blood pressure abnormal
     Dosage: UNK

REACTIONS (6)
  - Therapeutic product effect increased [Unknown]
  - Fatigue [Unknown]
  - Dizziness [Unknown]
  - Dehydration [Unknown]
  - Off label use [Unknown]
  - Drug effective for unapproved indication [Unknown]
